FAERS Safety Report 24579581 (Version 1)
Quarter: 2024Q4

REPORT INFORMATION
  Report Type: Spontaneous
  Country: US (occurrence: None)
  Receive Date: 20241104
  Receipt Date: 20241104
  Transmission Date: 20250114
  Serious: Yes (Hospitalization)
  Sender: Public
  Company Number: None

PATIENT
  Age: 59 Year
  Sex: Male

DRUGS (3)
  1. AMBRISENTAN [Suspect]
     Active Substance: AMBRISENTAN
     Indication: Pulmonary arterial hypertension
     Dosage: 10MG QD ORAL
     Route: 048
     Dates: start: 202410
  2. ENTECAVIR [Concomitant]
     Active Substance: ENTECAVIR
  3. REMODULIN [Concomitant]
     Active Substance: TREPROSTINIL

REACTIONS (5)
  - Oedema peripheral [None]
  - Oedema peripheral [None]
  - Nausea [None]
  - Diarrhoea [None]
  - Upper limb fracture [None]

NARRATIVE: CASE EVENT DATE: 20241029
